FAERS Safety Report 21096223 (Version 1)
Quarter: 2022Q3

REPORT INFORMATION
  Report Type: Spontaneous
  Country: JP (occurrence: JP)
  Receive Date: 20220718
  Receipt Date: 20220718
  Transmission Date: 20221027
  Serious: Yes (Hospitalization, Other)
  Sender: FDA-Public Use
  Company Number: JP-ALLERGAN-2222789US

PATIENT
  Sex: Male

DRUGS (8)
  1. ASENAPINE MALEATE [Suspect]
     Active Substance: ASENAPINE MALEATE
     Indication: Schizophrenia
     Dosage: 10 MG, QD
     Route: 060
  2. PALIPERIDONE [Concomitant]
     Active Substance: PALIPERIDONE
  3. BROMPERIDOL [Concomitant]
     Active Substance: BROMPERIDOL
  4. ALPRAZOLAM [Concomitant]
     Active Substance: ALPRAZOLAM
  5. ESZOPICLONE [Concomitant]
     Active Substance: ESZOPICLONE
  6. LEMBOREXANT [Concomitant]
     Active Substance: LEMBOREXANT
  7. SENNOSIDES [Concomitant]
     Active Substance: SENNOSIDES
  8. LUBIPROSTONE [Concomitant]
     Active Substance: LUBIPROSTONE

REACTIONS (8)
  - Water intoxication [Recovered/Resolved]
  - Polydipsia [Recovered/Resolved]
  - Hyponatraemia [Recovered/Resolved]
  - Seizure [Recovered/Resolved]
  - Thirst [Recovered/Resolved]
  - Weight fluctuation [Recovering/Resolving]
  - Incorrect route of product administration [Unknown]
  - Hyperkinesia [Recovered/Resolved]
